FAERS Safety Report 11820708 (Version 1)
Quarter: 2015Q4

REPORT INFORMATION
  Report Type: Spontaneous
  Country: US (occurrence: US)
  Receive Date: 20151210
  Receipt Date: 20151210
  Transmission Date: 20160305
  Serious: No
  Sender: FDA-Public Use
  Company Number: US-JNJFOC-20150424611

PATIENT
  Age: 72 Year
  Sex: Female

DRUGS (3)
  1. IMBRUVICA [Suspect]
     Active Substance: IBRUTINIB
     Indication: CHRONIC LYMPHOCYTIC LEUKAEMIA
     Route: 048
     Dates: start: 201503
  2. IMBRUVICA [Suspect]
     Active Substance: IBRUTINIB
     Indication: CHRONIC LYMPHOCYTIC LEUKAEMIA
     Route: 048
     Dates: start: 20150319
  3. XARELTO [Concomitant]
     Active Substance: RIVAROXABAN

REACTIONS (9)
  - Incorrect dose administered [Not Recovered/Not Resolved]
  - Pyrexia [Unknown]
  - Urinary tract infection [Unknown]
  - Blood urine present [Recovered/Resolved]
  - Upper respiratory tract infection [Unknown]
  - Cough [Unknown]
  - Nasal congestion [Unknown]
  - Nasopharyngitis [Unknown]
  - Contusion [Unknown]

NARRATIVE: CASE EVENT DATE: 2015
